FAERS Safety Report 5867833-6 (Version None)
Quarter: 2008Q3

REPORT INFORMATION
  Report Type: 
  Country: None (occurrence: None)
  Receive Date: 20080902
  Receipt Date: 20080611
  Transmission Date: 20090109
  Serious: No
  Sender: FDA-Public Use
  Company Number: US-ABBOTT-08P-163-0456932-00

PATIENT
  Sex: Female
  Weight: 72.64 kg

DRUGS (6)
  1. DEPAKOTE ER [Suspect]
     Indication: MOOD SWINGS
     Dosage: 250MG,  2 TABLETS 2 DAILY
     Route: 048
     Dates: start: 20080501, end: 20080501
  2. DEPAKOTE ER [Suspect]
     Dosage: 250MG ONE IN THE MORNING AND 2 AT NIGHT
     Route: 048
     Dates: start: 20080501
  3. METOPROLOL SUCCINATE [Concomitant]
     Indication: HYPERTENSION
     Route: 048
  4. WARFARIN SODIUM [Concomitant]
     Indication: ATRIAL FIBRILLATION
     Route: 048
  5. LEVOTHYROXINE SODIUM [Concomitant]
     Indication: HYPOTHYROIDISM
     Route: 048
  6. DIOVAN HCT [Concomitant]
     Indication: HYPERTENSION
     Dosage: 160/12.5 DAILY
     Route: 048

REACTIONS (4)
  - ALOPECIA [None]
  - HAIR DISORDER [None]
  - INCREASED APPETITE [None]
  - WEIGHT INCREASED [None]
